FAERS Safety Report 18715957 (Version 1)
Quarter: 2021Q1

REPORT INFORMATION
  Report Type: Spontaneous
  Country: DE (occurrence: DE)
  Receive Date: 20210108
  Receipt Date: 20210108
  Transmission Date: 20210419
  Serious: Yes (Hospitalization)
  Sender: FDA-Public Use
  Company Number: NVSC2021DE000686

PATIENT
  Sex: Male
  Weight: 57 kg

DRUGS (11)
  1. ACETYLSALICYLIC ACID [Suspect]
     Active Substance: ASPIRIN
     Indication: CORONARY ARTERY DISEASE
     Dosage: 100 MG,QD
     Route: 065
     Dates: start: 20201101
  2. RIVAROXABAN [Suspect]
     Active Substance: RIVAROXABAN
     Indication: CARDIOVASCULAR EVENT PROPHYLAXIS
     Dosage: 5 MG, QD (2.5 MG, BID)
     Route: 065
     Dates: start: 20200305, end: 20200316
  3. CLOPIDOGREL [Concomitant]
     Active Substance: CLOPIDOGREL BISULFATE
     Indication: PRODUCT USED FOR UNKNOWN INDICATION
     Dosage: 75 MG, QD
     Route: 065
     Dates: start: 20200322, end: 20200301
  4. ACETYLSALICYLIC ACID [Suspect]
     Active Substance: ASPIRIN
     Indication: CARDIOVASCULAR EVENT PROPHYLAXIS
     Dosage: 100 MG, QD
     Route: 065
     Dates: start: 2016, end: 20201028
  5. RIVAROXABAN [Suspect]
     Active Substance: RIVAROXABAN
     Dosage: 5 MG, QD (2.5 MG, BID)
     Route: 065
     Dates: start: 20201102
  6. ENOXAPARIN SODIUM. [Concomitant]
     Active Substance: ENOXAPARIN SODIUM
     Indication: PRODUCT USED FOR UNKNOWN INDICATION
     Dosage: 20 MG,QD
     Route: 065
     Dates: start: 20200316, end: 20200317
  7. ACETYLSALICYLIC ACID [Suspect]
     Active Substance: ASPIRIN
     Indication: PERIPHERAL ARTERIAL OCCLUSIVE DISEASE
  8. RIVAROXABAN [Suspect]
     Active Substance: RIVAROXABAN
     Indication: CORONARY ARTERY DISEASE
     Dosage: 5 MG, QD (2.5 MG, BID)
     Route: 065
     Dates: start: 20191115, end: 20200120
  9. RIVAROXABAN [Suspect]
     Active Substance: RIVAROXABAN
     Indication: PERIPHERAL ARTERIAL OCCLUSIVE DISEASE
     Dosage: 5 MG,QD (2.5 MG, BID)
     Route: 065
     Dates: start: 20200129, end: 20200301
  10. RIVAROXABAN [Suspect]
     Active Substance: RIVAROXABAN
     Dosage: 5 MG, QD  (2.5 MG, BID)
     Route: 065
     Dates: start: 20200318, end: 20200707
  11. RIVAROXABAN [Suspect]
     Active Substance: RIVAROXABAN
     Dosage: 5 MG, QD (2.5 MG, BID)
     Route: 065
     Dates: start: 20200713, end: 20201028

REACTIONS (1)
  - Gastrointestinal angiectasia [Recovered/Resolved]

NARRATIVE: CASE EVENT DATE: 20200708
